FAERS Safety Report 5662615-2 (Version None)
Quarter: 2008Q1

REPORT INFORMATION
  Report Type: 
  Country: None (occurrence: None)
  Receive Date: 20080313
  Receipt Date: 20080307
  Transmission Date: 20080703
  Serious: Yes (Hospitalization)
  Sender: FDA-Public Use
  Company Number: US-WYE-H02996108

PATIENT
  Sex: Female

DRUGS (3)
  1. RAPAMUNE [Suspect]
     Indication: RENAL TRANSPLANT
     Dosage: UNKNOWN
     Route: 048
  2. CELLCEPT [Concomitant]
     Indication: RENAL TRANSPLANT
  3. PREDNISONE [Concomitant]
     Indication: RENAL TRANSPLANT

REACTIONS (3)
  - IMPAIRED HEALING [None]
  - PANCREATITIS [None]
  - PANNICULITIS [None]
